FAERS Safety Report 16146095 (Version 2)
Quarter: 2019Q2

REPORT INFORMATION
  Report Type: Spontaneous
  Country: DE (occurrence: DE)
  Receive Date: 20190402
  Receipt Date: 20190410
  Transmission Date: 20190711
  Serious: Yes (Hospitalization, Other)
  Sender: FDA-Public Use
  Company Number: DE-AUROBINDO-AUR-APL-2019-017491

PATIENT

DRUGS (10)
  1. HYPNOREX [Suspect]
     Active Substance: LITHIUM CARBONATE
     Indication: BIPOLAR DISORDER
     Dosage: 0.8 GRAM, DAILY
     Route: 065
     Dates: start: 1998
  2. LITHIUM CARBONATE. [Suspect]
     Active Substance: LITHIUM CARBONATE
     Indication: BIPOLAR DISORDER
     Dosage: 1.2 GRAM, DAILY
     Route: 065
  3. QUILONUM [Suspect]
     Active Substance: LITHIUM
     Indication: BIPOLAR DISORDER
     Dosage: 1.35 GRAM, DAILY
     Route: 065
     Dates: start: 2005
  4. LISINOPRIL. [Suspect]
     Active Substance: LISINOPRIL
     Indication: HYPERTENSION
     Dosage: 20 MILLIGRAM
     Route: 065
     Dates: start: 2001
  5. LITHIUM CARBONATE. [Suspect]
     Active Substance: LITHIUM CARBONATE
     Dosage: 0.8 GRAM, DAILY
     Route: 065
     Dates: start: 1998
  6. LITHIUM CARBONATE. [Suspect]
     Active Substance: LITHIUM CARBONATE
     Dosage: 1 GRAM, DAILY
     Route: 065
     Dates: start: 2000
  7. IBUPROFEN. [Suspect]
     Active Substance: IBUPROFEN
     Indication: NASOPHARYNGITIS
     Dosage: UNK
     Route: 065
  8. HYPNOREX [Suspect]
     Active Substance: LITHIUM CARBONATE
     Dosage: 1 GRAM, DAILY
     Route: 065
     Dates: start: 2000
  9. HYPNOREX [Suspect]
     Active Substance: LITHIUM CARBONATE
     Dosage: 1.2 GRAM, ONCE A DAY
     Route: 065
     Dates: start: 2001
  10. LITHIUM CARBONATE. [Suspect]
     Active Substance: LITHIUM CARBONATE
     Dosage: 1.35 GRAM, DAILY
     Route: 065
     Dates: start: 2005

REACTIONS (12)
  - Antipsychotic drug level increased [Recovered/Resolved]
  - Ataxia [Recovering/Resolving]
  - Agitation [Recovering/Resolving]
  - Aphasia [Recovering/Resolving]
  - Hypomania [Unknown]
  - Toxicity to various agents [Recovering/Resolving]
  - Tremor [Recovering/Resolving]
  - Delirium [Recovering/Resolving]
  - Dysphagia [Recovering/Resolving]
  - Self-medication [Unknown]
  - Disorientation [Recovering/Resolving]
  - Apraxia [Recovering/Resolving]
